FAERS Safety Report 7877375-4 (Version None)
Quarter: 2011Q4

REPORT INFORMATION
  Report Type: 
  Country: None (occurrence: None)
  Receive Date: 20111031
  Receipt Date: 20111018
  Transmission Date: 20120403
  Serious: Yes (Other)
  Sender: FDA-Public Use
  Company Number: CA-ELI_LILLY_AND_COMPANY-CA201110004479

PATIENT
  Sex: Male

DRUGS (10)
  1. ATIVAN [Concomitant]
  2. FLURAZEPAM [Concomitant]
  3. ZYPREXA [Suspect]
     Dosage: 10 MG, EACH EVENING
  4. EFFEXOR [Concomitant]
  5. ZYPREXA [Suspect]
     Dosage: 15 MG, EACH EVENING
  6. TEMAZEPAM [Concomitant]
  7. ZYPREXA [Suspect]
     Dosage: 2.5 MG, EACH EVENING
  8. ZYPREXA [Suspect]
     Dosage: 20 MG, EACH EVENING
  9. ZYPREXA [Suspect]
     Dosage: 5 MG, EACH EVENING
  10. IMOVANE [Concomitant]

REACTIONS (15)
  - NIGHT SWEATS [None]
  - BLOOD TRIGLYCERIDES INCREASED [None]
  - BLOOD CHOLESTEROL INCREASED [None]
  - RENAL FAILURE [None]
  - ASTHENIA [None]
  - DIZZINESS [None]
  - HYPERGLYCAEMIA [None]
  - ASPARTATE AMINOTRANSFERASE INCREASED [None]
  - BLOOD PRESSURE DECREASED [None]
  - EXERCISE LACK OF [None]
  - WEIGHT INCREASED [None]
  - DIABETES MELLITUS [None]
  - HYPERTENSION [None]
  - GAMMA-GLUTAMYLTRANSFERASE INCREASED [None]
  - ALANINE AMINOTRANSFERASE INCREASED [None]
